FAERS Safety Report 10600539 (Version 6)
Quarter: 2015Q2

REPORT INFORMATION
  Report Type: Report from Study
  Country: US (occurrence: US)
  Receive Date: 20141124
  Receipt Date: 20150406
  Transmission Date: 20150821
  Serious: Yes (Hospitalization)
  Sender: FDA-Public Use
  Company Number: US-ALEXION PHARMACEUTICALS INC-A201404385

PATIENT

DRUGS (1)
  1. SOLIRIS [Suspect]
     Active Substance: ECULIZUMAB
     Indication: HAEMOLYTIC URAEMIC SYNDROME
     Dosage: 900 MG, QW
     Route: 042
     Dates: start: 20141108

REACTIONS (11)
  - Hypophagia [Unknown]
  - Influenza [Unknown]
  - Hypokinesia [Unknown]
  - Malaise [Unknown]
  - Frustration [Unknown]
  - Agitation [Unknown]
  - Condition aggravated [Unknown]
  - Fatigue [Recovering/Resolving]
  - Nasopharyngitis [Unknown]
  - Rash macular [Recovered/Resolved]
  - Infusion site thrombosis [Unknown]

NARRATIVE: CASE EVENT DATE: 201411
